FAERS Safety Report 4592716-1 (Version None)
Quarter: 2005Q1

REPORT INFORMATION
  Report Type: 
  Country: None (occurrence: None)
  Receive Date: 20050228
  Receipt Date: 20041005
  Transmission Date: 20050727
  Serious: Yes (Other)
  Sender: FDA-Public Use
  Company Number: PHEH2004US10740

PATIENT
  Age: 45 Year
  Sex: Female
  Weight: 100 kg

DRUGS (8)
  1. ZOMETA [Suspect]
     Indication: METASTASES TO BONE
     Dosage: MONTHLY
     Route: 042
     Dates: start: 20010101, end: 20040601
  2. ARIMIDEX [Concomitant]
     Indication: BREAST CANCER
  3. GLUCOVANCE [Concomitant]
     Indication: DIABETES MELLITUS
  4. PREDNISONE [Concomitant]
  5. MONOPRIL [Concomitant]
     Indication: HYPERTENSION
  6. DOXEPIN HCL [Concomitant]
     Indication: DEPRESSION
  7. WELLBUTRIN [Concomitant]
     Indication: DEPRESSION
  8. OXYCONTIN [Concomitant]
     Indication: BONE PAIN
     Dosage: 80 MG, QD
     Dates: start: 20010101

REACTIONS (9)
  - BONE DEBRIDEMENT [None]
  - GINGIVAL DISORDER [None]
  - GINGIVAL PAIN [None]
  - JAW DISORDER [None]
  - OSTEONECROSIS [None]
  - PAIN IN JAW [None]
  - TONGUE INJURY [None]
  - TOOTH DISORDER [None]
  - TOOTH EXTRACTION [None]
